FAERS Safety Report 4342252-2 (Version None)
Quarter: 2004Q2

REPORT INFORMATION
  Report Type: 
  Country: None (occurrence: None)
  Receive Date: 20040420
  Receipt Date: 20040420
  Transmission Date: 20050107
  Serious: Yes (Other)
  Sender: FDA-Public Use
  Company Number: None

PATIENT
  Sex: Male
  Weight: 42.1845 kg

DRUGS (1)
  1. CEPHALEXIN [Suspect]
     Indication: DERMOID CYST
     Dosage: CEPHALEXIN 250MG ORAL
     Route: 048
     Dates: start: 20040319, end: 20040319

REACTIONS (1)
  - RASH [None]
